FAERS Safety Report 17968464 (Version 1)
Quarter: 2020Q3

REPORT INFORMATION
  Report Type: Spontaneous
  Country: TR (occurrence: TR)
  Receive Date: 20200701
  Receipt Date: 20200701
  Transmission Date: 20201103
  Serious: Yes (Other)
  Sender: FDA-Public Use
  Company Number: TR-009507513-2006TUR009324

PATIENT
  Age: 75 Year
  Sex: Male

DRUGS (15)
  1. FLUCONAZOLE. [Concomitant]
     Active Substance: FLUCONAZOLE
     Indication: CANDIDA INFECTION
     Dosage: LOADING DOSE
     Route: 042
  2. COLISTIN [Concomitant]
     Active Substance: COLISTIN
     Indication: PSEUDOMONAS INFECTION
     Dosage: LOADING DOSE
     Route: 042
  3. INSULIN [Concomitant]
     Active Substance: INSULIN NOS
     Dosage: UNK
  4. AMLODIPINE [Concomitant]
     Active Substance: AMLODIPINE BESYLATE
     Dosage: UNK
  5. PHENIRAMINE (CHLORPHENIRAMINE MALEATE) [Concomitant]
     Active Substance: CHLORPHENIRAMINE MALEATE
     Indication: RASH MACULO-PAPULAR
     Dosage: UNK
  6. MEROPENEM. [Concomitant]
     Active Substance: MEROPENEM
     Indication: PSEUDOMONAS INFECTION
     Dosage: 500 MILLIGRAM TWICE DAILY
     Route: 042
  7. COLISTIN [Concomitant]
     Active Substance: COLISTIN
     Dosage: 56.25 MG TWICE DAILY
     Route: 042
  8. COLISTIN [Concomitant]
     Active Substance: COLISTIN
     Dosage: 50 MILLIGRAM TWICE DAILY
  9. CETIRIZINE HYDROCHLORIDE. [Concomitant]
     Active Substance: CETIRIZINE HYDROCHLORIDE
     Indication: RASH MACULO-PAPULAR
     Dosage: UNK
  10. FLUCONAZOLE. [Concomitant]
     Active Substance: FLUCONAZOLE
     Dosage: 200 MILLIGRAM DAILY
     Route: 042
  11. IMIPENEM AND CILASTATIN [Concomitant]
     Active Substance: CILASTATIN SODIUM\IMIPENEM
     Dosage: IMIPENEM DOSE 250 MG TWICE DAILY
     Route: 042
  12. ENOXAPARIN SODIUM. [Concomitant]
     Active Substance: ENOXAPARIN SODIUM
     Dosage: UNK
  13. RANITIDINE. [Concomitant]
     Active Substance: RANITIDINE
     Dosage: UNK
  14. ERTAPENEM SODIUM [Suspect]
     Active Substance: ERTAPENEM SODIUM
     Indication: PSEUDOMONAS INFECTION
     Dosage: 1000 MG DAILY
     Route: 042
  15. DOPAMINE [Concomitant]
     Active Substance: DOPAMINE HYDROCHLORIDE
     Dosage: UNK

REACTIONS (2)
  - Drug eruption [Unknown]
  - Therapeutic product cross-reactivity [Unknown]
